FAERS Safety Report 24413352 (Version 1)
Quarter: 2024Q4

REPORT INFORMATION
  Report Type: Spontaneous
  Country: CN (occurrence: CN)
  Receive Date: 20241008
  Receipt Date: 20241008
  Transmission Date: 20250115
  Serious: Yes (Hospitalization)
  Sender: VIRTUS PHARMACEUTICALS
  Company Number: CN-VIRTUS PHARMACEUTICALS, LLC-2024VTS00025

PATIENT
  Age: 55 Year
  Sex: Male

DRUGS (6)
  1. ACARBOSE [Suspect]
     Active Substance: ACARBOSE
     Indication: Type 2 diabetes mellitus
     Dosage: INITIAL; UNKNOWN
  2. ACARBOSE [Suspect]
     Active Substance: ACARBOSE
     Dosage: 100 MG, 3X/DAY
  3. DAPAGLIFLOZIN [Suspect]
     Active Substance: DAPAGLIFLOZIN
     Indication: Type 2 diabetes mellitus
     Dosage: 10 MG, 1X/DAY
  4. METFORMIN [Concomitant]
     Active Substance: METFORMIN HYDROCHLORIDE
     Indication: Type 2 diabetes mellitus
     Dosage: SPORADIC INTAKE
  5. INSULIN NOS [Concomitant]
     Active Substance: INSULIN NOS
     Indication: Type 2 diabetes mellitus
  6. IRBESARTAN [Concomitant]
     Active Substance: IRBESARTAN

REACTIONS (1)
  - Diabetic ketoacidosis [Recovered/Resolved]
